FAERS Safety Report 20670247 (Version 3)
Quarter: 2022Q3

REPORT INFORMATION
  Report Type: Report from Study
  Country: CA (occurrence: CA)
  Receive Date: 20220404
  Receipt Date: 20220922
  Transmission Date: 20221026
  Serious: Yes (Hospitalization, Other)
  Sender: FDA-Public Use
  Company Number: CA-JNJFOC-20220308819

PATIENT
  Age: 56 Year
  Sex: Male
  Weight: 78 kg

DRUGS (1)
  1. REMICADE [Suspect]
     Active Substance: INFLIXIMAB
     Indication: Ankylosing spondylitis
     Dosage: PATIENT HAD RECEIVED INFUSION ON 07-JAN-2022 EXPIRY DATE: AUG-2024, 01-JAN-2025?LAST INFUSION RECEIV
     Route: 042

REACTIONS (9)
  - Catheter placement [Unknown]
  - Crohn^s disease [Recovering/Resolving]
  - Device occlusion [Recovered/Resolved]
  - Dehydration [Unknown]
  - Ankylosing spondylitis [Recovering/Resolving]
  - Gastrointestinal bacterial overgrowth [Not Recovered/Not Resolved]
  - Fungal infection [Unknown]
  - Pouchitis [Unknown]
  - Prostatitis [Unknown]

NARRATIVE: CASE EVENT DATE: 20210601
